FAERS Safety Report 22041933 (Version 2)
Quarter: 2023Q2

REPORT INFORMATION
  Report Type: Report from Study
  Country: JP (occurrence: JP)
  Receive Date: 20230227
  Receipt Date: 20230501
  Transmission Date: 20230721
  Serious: Yes (Other)
  Sender: FDA-Public Use
  Company Number: JP-DSJP-DSJ-2023-107225

PATIENT
  Age: 80 Year
  Sex: Male

DRUGS (2)
  1. EDOXABAN [Suspect]
     Active Substance: EDOXABAN
     Indication: Product used for unknown indication
     Dosage: UNK
     Route: 065
  2. ALTEPLASE [Suspect]
     Active Substance: ALTEPLASE
     Dosage: UNK
     Route: 065

REACTIONS (1)
  - Femoral artery aneurysm [Unknown]
